FAERS Safety Report 9187094 (Version 2)
Quarter: 2013Q3

REPORT INFORMATION
  Report Type: Report from Study
  Country: CA (occurrence: CA)
  Receive Date: 20130325
  Receipt Date: 20130709
  Transmission Date: 20140515
  Serious: Yes (Hospitalization)
  Sender: FDA-Public Use
  Company Number: CA-JNJFOC-20120810762

PATIENT
  Sex: Female
  Weight: 55.79 kg

DRUGS (5)
  1. REMICADE [Suspect]
     Indication: CROHN^S DISEASE
     Route: 042
     Dates: start: 201211
  2. REMICADE [Suspect]
     Indication: CROHN^S DISEASE
     Dosage: IN 0, 2, AND 6 WEEKS
     Route: 042
     Dates: start: 20120716
  3. REMICADE [Suspect]
     Indication: CROHN^S DISEASE
     Route: 042
     Dates: start: 201301
  4. PREDNISONE [Concomitant]
     Route: 048
  5. AZATHIOPRINE [Concomitant]
     Route: 048
     Dates: start: 201207

REACTIONS (6)
  - Small intestinal obstruction [Not Recovered/Not Resolved]
  - Abscess [Recovered/Resolved]
  - Intestinal perforation [Unknown]
  - Malaise [Unknown]
  - Weight increased [Unknown]
  - Short-bowel syndrome [Unknown]
